FAERS Safety Report 7220012-2 (Version None)
Quarter: 2011Q1

REPORT INFORMATION
  Report Type: 
  Country: None (occurrence: None)
  Receive Date: 20110111
  Receipt Date: 20100330
  Transmission Date: 20110831
  Serious: Yes (Hospitalization)
  Sender: FDA-Public Use
  Company Number: US-PFIZER INC-2010043861

PATIENT
  Sex: Male
  Weight: 64 kg

DRUGS (12)
  1. APRACLONIDINE [Concomitant]
     Dosage: UNK
     Route: 065
  2. TENORMIN [Suspect]
     Dosage: 25 MG, UNK
     Route: 048
  3. TENORMIN [Suspect]
     Dosage: 12.5 MG, DAILY
     Route: 048
     Dates: start: 20100201
  4. TENORMIN [Suspect]
     Indication: HEART RATE IRREGULAR
     Dosage: 50 MG, 2X/DAY
     Route: 048
     Dates: start: 20100101, end: 20100101
  5. OMEPRAZOLE [Concomitant]
     Dosage: UNK
     Route: 065
  6. TENORMIN [Suspect]
     Dosage: 25 MG, DAILY
     Route: 048
     Dates: start: 20100201, end: 20100201
  7. SIMVASTATIN [Concomitant]
     Route: 065
  8. BICALUTAMIDE [Concomitant]
     Dosage: UNK
     Route: 065
  9. LEVETIRACETAM [Concomitant]
     Route: 065
  10. TEMAZEPAM [Concomitant]
     Route: 065
  11. TENORMIN [Suspect]
     Dosage: 12.5 MG, DAILY
     Route: 048
  12. WARFARIN [Concomitant]
     Dosage: UNK
     Route: 065

REACTIONS (3)
  - HEART RATE DECREASED [None]
  - CONVULSION [None]
  - TACHYCARDIA [None]
